FAERS Safety Report 23167332 (Version 2)
Quarter: 2024Q1

REPORT INFORMATION
  Report Type: Spontaneous
  Country: US (occurrence: US)
  Receive Date: 20231109
  Receipt Date: 20240201
  Transmission Date: 20240410
  Serious: Yes (Disabling, Other)
  Sender: FDA-Public Use
  Company Number: US-TEVA-2023-US-2943718

PATIENT
  Sex: Female

DRUGS (4)
  1. PROAIR HFA [Suspect]
     Active Substance: ALBUTEROL SULFATE
     Indication: Product used for unknown indication
     Dosage: DOSAGE TEXT: INHALATION - AEROSOL, 90 MCG
     Route: 065
  2. PROAIR HFA [Suspect]
     Active Substance: ALBUTEROL SULFATE
     Dosage: DOSAGE TEXT: INHALATION - AEROSOL, 90 MCG
     Route: 065
  3. PROAIR HFA [Suspect]
     Active Substance: ALBUTEROL SULFATE
     Dosage: DOSAGE TEXT: INHALATION - AEROSOL, 90 MCG
     Route: 065
  4. PROAIR HFA [Suspect]
     Active Substance: ALBUTEROL SULFATE
     Dosage: DOSAGE TEXT: INHALATION - AEROSOL, 90 MCG
     Route: 065

REACTIONS (4)
  - Disability [Unknown]
  - Blindness unilateral [Unknown]
  - Chronic obstructive pulmonary disease [Unknown]
  - Drug delivery system issue [Unknown]
